FAERS Safety Report 5106242-4 (Version None)
Quarter: 2006Q3

REPORT INFORMATION
  Report Type: 
  Country: None (occurrence: None)
  Receive Date: 20060912
  Receipt Date: 20060830
  Transmission Date: 20061208
  Serious: Yes (Hospitalization)
  Sender: FDA-Public Use
  Company Number: 2006101692

PATIENT
  Age: 73 Year
  Sex: Male
  Weight: 77 kg

DRUGS (4)
  1. SUTENT [Suspect]
     Indication: RENAL CELL CARCINOMA STAGE UNSPECIFIED
     Dosage: 50 MG (50 MG, EVERY DAY) ORAL
     Route: 048
     Dates: start: 20060718, end: 20060811
  2. RANITIDINE [Concomitant]
  3. RAMIPRIL/HYDROCHLOROTHIAZIDE [Concomitant]
  4. BONADOXIN (MECLOZINE HYDROCHLORIDE, PYRIDOXINE HYDROCHLORIDE) [Concomitant]

REACTIONS (14)
  - ANXIETY [None]
  - DISEASE PROGRESSION [None]
  - EYELID OEDEMA [None]
  - FATIGUE [None]
  - GASTROINTESTINAL TOXICITY [None]
  - HICCUPS [None]
  - HYPERCHLORHYDRIA [None]
  - HYPONATRAEMIA [None]
  - METASTASES TO LUNG [None]
  - OEDEMA PERIPHERAL [None]
  - PLEURAL EFFUSION [None]
  - RESPIRATORY FAILURE [None]
  - SALIVARY HYPERSECRETION [None]
  - THROMBOCYTOPENIA [None]
